FAERS Safety Report 6879337-2 (Version None)
Quarter: 2010Q3

REPORT INFORMATION
  Report Type: 
  Country: None (occurrence: None)
  Receive Date: 20100728
  Receipt Date: 20100713
  Transmission Date: 20110219
  Serious: Yes (Hospitalization)
  Sender: FDA-Public Use
  Company Number: TW-BRISTOL-MYERS SQUIBB COMPANY-14234694

PATIENT
  Age: 49 Year
  Sex: Male
  Weight: 60 kg

DRUGS (12)
  1. ERBITUX [Suspect]
     Indication: HEAD AND NECK CANCER
     Dosage: STARTED: 12MAY08 MOST RECENT INFUSION:10JUN2008 600MG(12MAY08-19MAY08)-7D 400MG(26MAY08-10JUN08)
     Route: 042
     Dates: start: 20080512, end: 20080610
  2. CISPLATIN [Suspect]
     Indication: HEAD AND NECK CANCER
     Dosage: STARTED:12-MAY-2008 MOST RECENT INFUSION: 10-JUN-2008 19MAY08-10JUN08 07JUL08-21JUL08(14D)
     Route: 042
     Dates: start: 20080512, end: 20080610
  3. RADIATION THERAPY [Suspect]
     Indication: HEAD AND NECK CANCER
     Dosage: 1 DOSAGE FORM = 2G/DAY(ONCE DAILY,5 TIMES/WEEK).FROM 14-19JUN08,3 TIMES OF RADIATION(TOTALLY 6GY).
     Dates: start: 20080526, end: 20080711
  4. TETRACYCLINE [Concomitant]
     Route: 048
     Dates: start: 20080602, end: 20080606
  5. MINOCYCLINE [Concomitant]
     Indication: HEAD AND NECK CANCER
     Dosage: 100MG (2 IN 1 DAY)
     Route: 048
     Dates: start: 20080610, end: 20080611
  6. CHLORPHENIRAMINE MALEATE [Concomitant]
     Dosage: 12MAY08-10JUN08(29DAYS) 16JUN08-23JUN08(7DAYS)
     Route: 042
     Dates: start: 20080512, end: 20080623
  7. DEXAMETHASONE [Concomitant]
     Dosage: 12MAY08-12MAY08 16JUN08-23JUN08(7D) 14JUL08-21JUL08(7D)
     Route: 042
     Dates: start: 20080512, end: 20080721
  8. BETAMETHASONE [Concomitant]
     Dosage: 19MAY08-26MAY08(7D) 02JUN08-10JUN08(8D) 07JUL08-
     Route: 042
     Dates: start: 20080519, end: 20080526
  9. MANNITOL [Concomitant]
     Dosage: 19MAY08-26MAY08(7D) 02JUN08-10JUN08(8D) 07JUL08- 20ML/D
     Route: 042
     Dates: start: 20080519, end: 20080526
  10. GRANISETRON HCL [Concomitant]
     Dosage: 19MAY08-26MAY08(7D) 02JUN08-10JUN08(8D) 07JUL08-
     Route: 042
     Dates: start: 20080519, end: 20080526
  11. MAGNESIUM [Concomitant]
     Dosage: 19MAY08-26MAY08(7D) 02JUN08-10JUN08(8D) 07JUL08-
     Route: 042
     Dates: start: 20080519, end: 20080526
  12. POTASSIUM CHLORIDE [Concomitant]
     Dosage: 19MAY08-26MAY08(7D) 02JUN08-10JUN08(8D) 07JUL08-
     Route: 042
     Dates: start: 20080519, end: 20080526

REACTIONS (3)
  - RASH [None]
  - STOMATITIS [None]
  - TOXIC EPIDERMAL NECROLYSIS [None]
